FAERS Safety Report 12829754 (Version 1)
Quarter: 2016Q4

REPORT INFORMATION
  Report Type: Spontaneous
  Country: US (occurrence: US)
  Receive Date: 20161007
  Receipt Date: 20161007
  Transmission Date: 20170207
  Serious: No
  Sender: FDA-Public Use
  Company Number: US-SA-2016SA112336

PATIENT
  Age: 57 Year
  Sex: Female

DRUGS (3)
  1. CIPROFLOXACIN. [Concomitant]
     Active Substance: CIPROFLOXACIN
  2. AUBAGIO [Suspect]
     Active Substance: TERIFLUNOMIDE
     Indication: MULTIPLE SCLEROSIS
     Route: 048
     Dates: start: 20160126
  3. AUBAGIO [Suspect]
     Active Substance: TERIFLUNOMIDE
     Indication: FUNGAL INFECTION
     Route: 048
     Dates: start: 20160126

REACTIONS (4)
  - Diarrhoea [Unknown]
  - Product use issue [Unknown]
  - Fall [Unknown]
  - Amnesia [Unknown]

NARRATIVE: CASE EVENT DATE: 20160127
